FAERS Safety Report 23810813 (Version 1)
Quarter: 2024Q2

REPORT INFORMATION
  Report Type: Spontaneous
  Country: GB (occurrence: GB)
  Receive Date: 20240502
  Receipt Date: 20240502
  Transmission Date: 20240716
  Serious: Yes (Other)
  Sender: FDA-Public Use
  Company Number: None

PATIENT
  Age: 62 Year
  Sex: Female
  Weight: 82 kg

DRUGS (23)
  1. NIQUITIN [Suspect]
     Active Substance: NICOTINE
     Indication: Smoking cessation therapy
     Dosage: 21 MG, QD
     Route: 003
     Dates: start: 20240326
  2. CALCIUM CARBONATE [Concomitant]
     Active Substance: CALCIUM CARBONATE
     Dosage: IN THE MORNING AND TWO CAPLETS...
     Dates: start: 20240104
  3. ADIZEM [Concomitant]
     Active Substance: DILTIAZEM HYDROCHLORIDE
     Dates: start: 20240104, end: 20240313
  4. ALVERINE CITRATE [Concomitant]
     Active Substance: ALVERINE CITRATE
     Dosage: IN THE MORNING, ONE CAPSULE AT...
     Dates: start: 20240104
  5. AMITRIPTYLINE HYDROCHLORIDE [Concomitant]
     Active Substance: AMITRIPTYLINE HYDROCHLORIDE
     Dosage: AT NIGHT
     Dates: start: 20240104, end: 20240313
  6. ASPIRIN [Concomitant]
     Active Substance: ASPIRIN
     Dosage: IN THE MORNING
     Dates: start: 20240104
  7. ATORVASTATIN [Concomitant]
     Active Substance: ATORVASTATIN
     Dosage: IN THE MORNING
     Dates: start: 20240104
  8. CETIRIZINE [Concomitant]
     Active Substance: CETIRIZINE HYDROCHLORIDE
     Dates: start: 20240104
  9. CITALOPRAM [Concomitant]
     Active Substance: CITALOPRAM\CITALOPRAM HYDROBROMIDE
     Dosage: AT NIGHT
     Dates: start: 20240104
  10. CLONAZEPAM [Concomitant]
     Active Substance: CLONAZEPAM
     Dosage: AT NIGHT
     Dates: start: 20240104
  11. AMOXICILLIN\CLAVULANATE POTASSIUM [Concomitant]
     Active Substance: AMOXICILLIN\CLAVULANATE POTASSIUM
     Dates: start: 20240319, end: 20240324
  12. DULOXETINE [Concomitant]
     Active Substance: DULOXETINE
     Dosage: AT NIGHT.
     Dates: start: 20240313
  13. FERROUS FUMARATE [Concomitant]
     Active Substance: FERROUS FUMARATE
     Dosage: IN THE MORNING.
     Dates: start: 20240313
  14. FLUCONAZOLE [Concomitant]
     Active Substance: FLUCONAZOLE
     Dosage: USE AS DIRECTED
     Dates: start: 20240319, end: 20240326
  15. FOLIC ACID [Concomitant]
     Active Substance: FOLIC ACID
     Dosage: IN THE MORNING
     Dates: start: 20240313
  16. GLICLAZIDE [Concomitant]
     Active Substance: GLICLAZIDE
     Dosage: (TOTAL 120MG BD)
     Dates: start: 20240104
  17. HYDROXOCOBALAMIN [Concomitant]
     Active Substance: HYDROXOCOBALAMIN
     Route: 030
     Dates: start: 20240206
  18. METFORMIN [Concomitant]
     Active Substance: METFORMIN HYDROCHLORIDE
     Dates: start: 20240408
  19. METOCLOPRAMIDE [Concomitant]
     Active Substance: METOCLOPRAMIDE
     Dosage: IN THE MORNING AND ONE TABLET A...
     Dates: start: 20240104
  20. NICOTINE [Concomitant]
     Active Substance: NICOTINE
     Indication: Food craving
     Dosage: USE AS NEEDED TO PREVENT CRAVINGS, MAX 6 DAILY
     Dates: start: 20240408, end: 20240415
  21. OMEPRAZOLE [Concomitant]
     Active Substance: OMEPRAZOLE
     Dates: start: 20240104
  22. TRAMADOL [Concomitant]
     Active Substance: TRAMADOL\TRAMADOL HYDROCHLORIDE
     Dosage: 1-2 UP TO TO BE TAKEN FOUR TIMES DAILY
     Dates: start: 20240104
  23. BECLOMETHASONE DIPROPIONATE\FORMOTEROL FUMARATE\GLYCOPYRROLATE [Concomitant]
     Active Substance: BECLOMETHASONE DIPROPIONATE\FORMOTEROL FUMARATE\GLYCOPYRROLATE
     Route: 055
     Dates: start: 20240104

REACTIONS (3)
  - Application site rash [Recovered/Resolved]
  - Application site hypersensitivity [Recovered/Resolved]
  - Application site erythema [Recovered/Resolved]
